FAERS Safety Report 8112974-6 (Version None)
Quarter: 2012Q1

REPORT INFORMATION
  Report Type: 
  Country: None (occurrence: None)
  Receive Date: 20120203
  Receipt Date: 20120123
  Transmission Date: 20120608
  Serious: Yes (Hospitalization)
  Sender: FDA-Public Use
  Company Number: AU-ELI_LILLY_AND_COMPANY-AU201201006178

PATIENT
  Sex: Female

DRUGS (1)
  1. FORTEO [Suspect]
     Indication: OSTEOPOROSIS
     Dosage: 20 UG, QD
     Dates: start: 20101018

REACTIONS (5)
  - ABDOMINAL DISTENSION [None]
  - WEIGHT INCREASED [None]
  - OSTEOARTHRITIS [None]
  - FOOT FRACTURE [None]
  - BLOOD TEST ABNORMAL [None]
